FAERS Safety Report 9665755 (Version 2)
Quarter: 2013Q4

REPORT INFORMATION
  Report Type: Spontaneous
  Country: GB (occurrence: GB)
  Receive Date: 20131104
  Receipt Date: 20131107
  Transmission Date: 20140711
  Serious: Yes (Life-Threatening)
  Sender: FDA-Public Use
  Company Number: GB-ASTRAZENECA-2013SE80492

PATIENT
  Age: 66 Year
  Sex: Female

DRUGS (6)
  1. OMEPRAZOLE [Suspect]
     Indication: ABDOMINAL PAIN UPPER
     Route: 048
     Dates: start: 20130808, end: 20131009
  2. BACLOFEN [Concomitant]
  3. CALCICHEW [Concomitant]
  4. CANDESARTAN [Concomitant]
  5. CO-DYDRAMOL [Concomitant]
  6. TOVIAZ [Concomitant]

REACTIONS (3)
  - Renal failure acute [Recovering/Resolving]
  - Renal injury [Recovering/Resolving]
  - Tubulointerstitial nephritis [Recovering/Resolving]
